FAERS Safety Report 5688780-9 (Version None)
Quarter: 2008Q1

REPORT INFORMATION
  Report Type: 
  Country: None (occurrence: None)
  Receive Date: 20080331
  Receipt Date: 20080319
  Transmission Date: 20080703
  Serious: Yes (Life-Threatening)
  Sender: FDA-Public Use
  Company Number: JP-ROCHE-554774

PATIENT
  Age: 39 Year
  Sex: Female

DRUGS (4)
  1. TAMIFLU [Suspect]
     Route: 048
     Dates: start: 20080129, end: 20080202
  2. METHISTA [Concomitant]
     Dosage: FORM: ORAL FORMULATION (NOT OTHERWISE SPECIFIED).
     Route: 048
  3. RESPLEN [Concomitant]
     Dosage: FORM: ORAL FORMULATION (NOT OTHERWISE SPECIFIED)
     Route: 048
  4. CHLORPHENIRAMINE MALEATE [Concomitant]
     Dosage: DRUG: NEOMALLERMIN (D-CHLORPHENIRAMINE MALEATE)
     Route: 048

REACTIONS (2)
  - NEUTROPENIA [None]
  - RASH [None]
